FAERS Safety Report 6348716-4 (Version None)
Quarter: 2009Q3

REPORT INFORMATION
  Report Type: 
  Country: None (occurrence: None)
  Receive Date: 20090911
  Receipt Date: 20090904
  Transmission Date: 20100115
  Serious: Yes (Hospitalization)
  Sender: FDA-Public Use
  Company Number: PHHO2009IT10927

PATIENT
  Sex: Female
  Weight: 75 kg

DRUGS (4)
  1. CERTICAN [Suspect]
     Indication: METASTATIC NEOPLASM
     Dosage: 10 MG/DAY
     Route: 048
     Dates: start: 20090716, end: 20090902
  2. LANREOTIDE ACETATE [Concomitant]
     Dosage: UNK
     Route: 030
     Dates: start: 20021001
  3. DEXAMETHASONE [Concomitant]
     Dosage: UNK
     Dates: start: 20090301
  4. MORPHINE [Concomitant]
     Indication: PAIN

REACTIONS (3)
  - PYREXIA [None]
  - RASH [None]
  - SKIN ULCER [None]
